FAERS Safety Report 25003657 (Version 1)
Quarter: 2025Q1

REPORT INFORMATION
  Report Type: Spontaneous
  Country: US (occurrence: US)
  Receive Date: 20250224
  Receipt Date: 20250224
  Transmission Date: 20250409
  Serious: Yes (Other)
  Sender: FERRING
  Company Number: US-FERRINGPH-2024FE02014

PATIENT
  Age: 75 Year
  Sex: Male
  Weight: 70.748 kg

DRUGS (1)
  1. DESMOPRESSIN [Suspect]
     Active Substance: DESMOPRESSIN
     Indication: Nocturia
     Dosage: 0.1 MG, 1 TIME DAILY AT BEDTIME
     Route: 065
     Dates: start: 202309

REACTIONS (1)
  - Blood sodium decreased [Recovered/Resolved]

NARRATIVE: CASE EVENT DATE: 20230901
